FAERS Safety Report 25293295 (Version 1)
Quarter: 2025Q2

REPORT INFORMATION
  Report Type: Spontaneous
  Country: US (occurrence: US)
  Receive Date: 20250510
  Receipt Date: 20250510
  Transmission Date: 20250717
  Serious: No
  Sender: SANOFI AVENTIS
  Company Number: US-SA-2025SA128716

PATIENT
  Age: 60 Year
  Sex: Female
  Weight: 40.91 kg

DRUGS (9)
  1. DUPIXENT [Suspect]
     Active Substance: DUPILUMAB
     Indication: Dermatitis atopic
     Route: 058
     Dates: start: 20240507
  2. MELATONIN [Concomitant]
     Active Substance: MELATONIN
  3. VITAMIN C [Concomitant]
     Active Substance: ASCORBIC ACID
  4. L THEANINE [THEANINE] [Concomitant]
  5. .ALPHA.-TOCOPHEROL [Concomitant]
     Active Substance: .ALPHA.-TOCOPHEROL
  6. ZINC SULFATE [Concomitant]
     Active Substance: ZINC SULFATE
  7. ACETYLCYSTEINE [Concomitant]
     Active Substance: ACETYLCYSTEINE
  8. CLOBETASOL [Concomitant]
     Active Substance: CLOBETASOL
  9. STRONTIUM [Concomitant]
     Active Substance: STRONTIUM

REACTIONS (3)
  - Dermatitis atopic [Unknown]
  - Pruritus [Unknown]
  - Injection site pain [Unknown]

NARRATIVE: CASE EVENT DATE: 20240507
